FAERS Safety Report 5304824-8 (Version None)
Quarter: 2007Q2

REPORT INFORMATION
  Report Type: 
  Country: None (occurrence: None)
  Receive Date: 20070423
  Receipt Date: 20070411
  Transmission Date: 20071010
  Serious: Yes (Death, Hospitalization)
  Sender: FDA-Public Use
  Company Number: JP-SANOFI-SYNTHELABO-A01200703125

PATIENT
  Sex: Male
  Weight: 46 kg

DRUGS (11)
  1. FLUOROURACIL [Suspect]
     Dosage: 575 MG/BODY=399.3 MG/M2 BOLUS THEN 3575 MG/BODY=2482.6 MG/M2 INFUSION D1-2
     Route: 041
     Dates: start: 20070129, end: 20070130
  2. OXALIPLATIN [Suspect]
     Indication: RECTAL CANCER
     Dosage: 125 MG/BODY=86.8 MG/M2
     Route: 041
     Dates: start: 20070129, end: 20070129
  3. FENTANYL [Concomitant]
     Indication: ANALGESIC THERAPY
     Route: 042
     Dates: start: 20070324
  4. MIDAZOLAM HCL [Concomitant]
     Indication: SEDATION
     Route: 042
     Dates: start: 20070320
  5. FAMOTIDINE [Concomitant]
     Indication: PROPHYLAXIS AGAINST GASTROINTESTINAL ULCER
     Route: 042
     Dates: start: 20070313
  6. FUROSEMIDE [Concomitant]
     Indication: CARDIAC FAILURE
     Route: 042
     Dates: start: 20070312
  7. SULBACTAM SODIUM_CEFOPERAZONE SODIUM [Concomitant]
     Indication: CATHETER RELATED INFECTION
     Route: 042
     Dates: start: 20070308, end: 20070312
  8. CEFAZOLIN SODIUM [Concomitant]
     Indication: PYREXIA
     Route: 042
     Dates: start: 20070306, end: 20070307
  9. INDISETRON HYDROCHLORIDE [Concomitant]
     Route: 048
     Dates: start: 20060705, end: 20070129
  10. DEXAMETHASONE SODIUM PHOSPHATE [Concomitant]
     Route: 042
     Dates: start: 20060705, end: 20070129
  11. LEUCOVORIN CALCIUM [Concomitant]
     Dosage: 275 MG/BODY=191 MG/M2 INFUSION D1
     Route: 042
     Dates: start: 20070129, end: 20070129

REACTIONS (3)
  - ILEUS [None]
  - INTERSTITIAL LUNG DISEASE [None]
  - RESPIRATORY FAILURE [None]
